FAERS Safety Report 7226293-3 (Version None)
Quarter: 2011Q1

REPORT INFORMATION
  Report Type: 
  Country: None (occurrence: None)
  Receive Date: 20110114
  Receipt Date: 20110106
  Transmission Date: 20110831
  Serious: Yes (Other)
  Sender: FDA-Public Use
  Company Number: PHHY2010BR87447

PATIENT
  Sex: Male

DRUGS (5)
  1. ALEXO SIDRAM [Concomitant]
  2. RITALIN [Suspect]
     Indication: ATTENTION DEFICIT/HYPERACTIVITY DISORDER
     Dosage: 4 DF, QD
     Route: 048
     Dates: start: 20100401
  3. RITALIN [Suspect]
     Dosage: 2 DF, BID
  4. RITALIN LA [Suspect]
     Dosage: 20 MG, BID
     Route: 048
  5. PARACETAMOL [Concomitant]

REACTIONS (11)
  - BREATH ODOUR [None]
  - HYPERHIDROSIS [None]
  - PHARYNGEAL OEDEMA [None]
  - NAUSEA [None]
  - LARYNGEAL DISORDER [None]
  - DYSGEUSIA [None]
  - DYSPNOEA [None]
  - DRY SKIN [None]
  - DRY MOUTH [None]
  - PALPITATIONS [None]
  - DIZZINESS [None]
